FAERS Safety Report 19828280 (Version 2)
Quarter: 2021Q4

REPORT INFORMATION
  Report Type: Report from Study
  Country: US (occurrence: US)
  Receive Date: 20210914
  Receipt Date: 20211117
  Transmission Date: 20220303
  Serious: Yes (Hospitalization, Other)
  Sender: FDA-Public Use
  Company Number: US-ABBVIE-21K-163-4075979-00

PATIENT
  Sex: Female

DRUGS (6)
  1. IMBRUVICA [Suspect]
     Active Substance: IBRUTINIB
     Indication: Product used for unknown indication
     Route: 048
     Dates: start: 2017
  2. BUTABARBITAL\HYOSCYAMINE HYDROBROMIDE\PHENAZOPYRIDINE HYDROCHLORIDE [Concomitant]
     Active Substance: BUTABARBITAL\HYOSCYAMINE HYDROBROMIDE\PHENAZOPYRIDINE HYDROCHLORIDE
     Indication: Product used for unknown indication
  3. TAMSULOSIN [Concomitant]
     Active Substance: TAMSULOSIN
     Indication: Product used for unknown indication
  4. BASAGLAR KWIKPEN [Concomitant]
     Active Substance: INSULIN GLARGINE
     Indication: Product used for unknown indication
  5. METFORMIN [Concomitant]
     Active Substance: METFORMIN HYDROCHLORIDE
     Indication: Product used for unknown indication
  6. MYRBETRIQ [Concomitant]
     Active Substance: MIRABEGRON
     Indication: Product used for unknown indication

REACTIONS (8)
  - Benign neoplasm of bladder [Unknown]
  - Surgery [Recovering/Resolving]
  - Pollakiuria [Not Recovered/Not Resolved]
  - Blood glucose increased [Recovering/Resolving]
  - Micturition urgency [Not Recovered/Not Resolved]
  - Bone pain [Recovered/Resolved]
  - Blood urine present [Recovering/Resolving]
  - COVID-19 [Recovered/Resolved]
